FAERS Safety Report 11432145 (Version 1)
Quarter: 2015Q3

REPORT INFORMATION
  Report Type: Spontaneous
  Country: US (occurrence: US)
  Receive Date: 20150828
  Receipt Date: 20150828
  Transmission Date: 20151125
  Serious: Yes (Hospitalization, Other)
  Sender: FDA-Public Use
  Company Number: US-PFIZER INC-2015274467

PATIENT
  Age: 68 Year
  Sex: Male

DRUGS (3)
  1. MITOMYCIN C [Suspect]
     Active Substance: MITOMYCIN
     Indication: ADENOCARCINOMA GASTRIC
     Dosage: 10 MG/M2, CYCLIC (SIX CYCLES)
  2. FLUOROURACIL. [Suspect]
     Active Substance: FLUOROURACIL
     Indication: ADENOCARCINOMA GASTRIC
     Dosage: 600 MG/M2, CYCLIC, (SIX CYCLES)
  3. ADRIAMYCIN [Suspect]
     Active Substance: DOXORUBICIN HYDROCHLORIDE
     Indication: ADENOCARCINOMA GASTRIC
     Dosage: 30 MG/M2, UNK

REACTIONS (1)
  - Pulmonary veno-occlusive disease [Not Recovered/Not Resolved]
